FAERS Safety Report 7264419-6 (Version None)
Quarter: 2011Q1

REPORT INFORMATION
  Report Type: 
  Country: None (occurrence: None)
  Receive Date: 20110131
  Receipt Date: 20110121
  Transmission Date: 20110831
  Serious: Yes (Death, Other)
  Sender: FDA-Public Use
  Company Number: JP-PFIZER INC-2011012507

PATIENT
  Age: 63 Year
  Sex: Female
  Weight: 46 kg

DRUGS (1)
  1. SOLU-MEDROL [Suspect]
     Dosage: 1 G, UNK
     Route: 065

REACTIONS (6)
  - RESPIRATORY FAILURE [None]
  - CYTOMEGALOVIRUS TEST POSITIVE [None]
  - PNEUMOTHORAX [None]
  - SKIN ULCER [None]
  - PNEUMONIA ASPIRATION [None]
  - PNEUMOMEDIASTINUM [None]
